FAERS Safety Report 4373417-1 (Version None)
Quarter: 2004Q2

REPORT INFORMATION
  Report Type: 
  Country: None (occurrence: None)
  Receive Date: 20040603
  Receipt Date: 20040525
  Transmission Date: 20050107
  Serious: Yes (Hospitalization, Other)
  Sender: FDA-Public Use
  Company Number: 2004215781GB

PATIENT
  Age: 75 Year
  Sex: Female

DRUGS (6)
  1. CABASER (CABERGOLINE) TABLET, 1-4MG [Suspect]
     Indication: PARKINSON'S DISEASE
     Dosage: 2 MG, QD, ORAL
     Route: 048
     Dates: start: 20010301, end: 20030301
  2. ORPHENADRINE CITRATE [Concomitant]
  3. AMANTADINE HCL [Concomitant]
  4. BENDROFLUAZIDE [Concomitant]
  5. ASPIRIN [Concomitant]
  6. SINEMET [Concomitant]

REACTIONS (3)
  - CARDIAC FAILURE [None]
  - MITRAL VALVE INCOMPETENCE [None]
  - TRICUSPID VALVE INCOMPETENCE [None]
